FAERS Safety Report 24566027 (Version 2)
Quarter: 2024Q4

REPORT INFORMATION
  Report Type: Spontaneous
  Country: US (occurrence: US)
  Receive Date: 20241030
  Receipt Date: 20241203
  Transmission Date: 20250115
  Serious: No
  Sender: BANNER
  Company Number: BANN2400271

PATIENT

DRUGS (1)
  1. BAFIERTAM [Suspect]
     Active Substance: MONOMETHYL FUMARATE
     Indication: Multiple sclerosis
     Dosage: 2 CAPS TWICE A DAY
     Route: 048
     Dates: start: 20220216

REACTIONS (1)
  - No adverse event [Unknown]

NARRATIVE: CASE EVENT DATE: 20241015
